FAERS Safety Report 8833447 (Version 1)
Quarter: 2012Q4

REPORT INFORMATION
  Report Type: 
  Country: US (occurrence: US)
  Receive Date: 20121010
  Receipt Date: 20121010
  Transmission Date: 20130627
  Serious: No
  Sender: FDA-Public Use
  Company Number: US-VERTEX PHARMACEUTICAL INC.-2012-021978

PATIENT
  Sex: Female
  Weight: 122.45 kg

DRUGS (8)
  1. INCIVEK [Suspect]
     Indication: HEPATITIS C
     Dosage: 750 mg, tid
     Route: 048
     Dates: start: 20120810
  2. RIBAVIRIN [Suspect]
     Indication: HEPATITIS C
     Dosage: 600 mg, bid
     Route: 048
     Dates: start: 20120810
  3. RIBAVIRIN [Suspect]
     Dosage: 300 mg, qd
     Route: 048
     Dates: start: 201209
  4. PEGASYS [Suspect]
     Indication: HEPATITIS C
     Dosage: 180 ?g, UNK
     Route: 058
     Dates: start: 20120810
  5. FUROSEMIDE [Concomitant]
     Indication: HYPERTENSION
     Dosage: 40 mg, qd
     Route: 048
  6. KCL [Concomitant]
     Dosage: 10 mEq, qd
     Route: 048
  7. SPIRONOLACTONE [Concomitant]
     Indication: HYPERTENSION
     Dosage: 15 mg, qd
     Route: 048
  8. TYLENOL /00020001/ [Concomitant]
     Indication: PAIN
     Dosage: 2000 mg, qd
     Route: 048

REACTIONS (5)
  - Anaemia [Not Recovered/Not Resolved]
  - Diarrhoea [Not Recovered/Not Resolved]
  - Haemorrhoidal haemorrhage [Not Recovered/Not Resolved]
  - Haemorrhoids [None]
  - Anorectal discomfort [Not Recovered/Not Resolved]
